FAERS Safety Report 5934317-6 (Version None)
Quarter: 2008Q4

REPORT INFORMATION
  Report Type: 
  Country: None (occurrence: None)
  Receive Date: 20081029
  Receipt Date: 20081020
  Transmission Date: 20090506
  Serious: Yes (Other)
  Sender: FDA-Public Use
  Company Number: PHBS2008KR06089

PATIENT
  Age: 50 Year
  Sex: Male

DRUGS (3)
  1. PAMIDRONATE DISODIUM [Suspect]
     Indication: MULTIPLE MYELOMA
     Dosage: 45 MG, QMO
  2. ANTINEOPLASTIC AGENTS [Concomitant]
  3. GLUCOCORTICOIDS [Concomitant]

REACTIONS (4)
  - OSTEONECROSIS [None]
  - PAIN IN JAW [None]
  - PURULENCE [None]
  - TOOTH EXTRACTION [None]
